FAERS Safety Report 5794370-X (Version None)
Quarter: 2008Q2

REPORT INFORMATION
  Report Type: 
  Country: None (occurrence: None)
  Receive Date: 20080616
  Receipt Date: 20080603
  Transmission Date: 20081010
  Serious: Yes (Death, Hospitalization)
  Sender: FDA-Public Use
  Company Number: WSDF_00735

PATIENT
  Age: 42 Year
  Sex: Male

DRUGS (1)
  1. WINRHO [Suspect]
     Indication: IDIOPATHIC THROMBOCYTOPENIC PURPURA
     Dosage: 50 U/KG

REACTIONS (6)
  - ACUTE HEPATIC FAILURE [None]
  - CLOSTRIDIUM BACTERAEMIA [None]
  - CLOSTRIDIUM DIFFICILE COLITIS [None]
  - DISSEMINATED INTRAVASCULAR COAGULATION [None]
  - EXTRAVASCULAR HAEMOLYSIS [None]
  - RENAL FAILURE [None]
